FAERS Safety Report 17967786 (Version 1)
Quarter: 2020Q2

REPORT INFORMATION
  Report Type: Spontaneous
  Country: US (occurrence: US)
  Receive Date: 20200630
  Receipt Date: 20200630
  Transmission Date: 20200714
  Serious: Yes (Hospitalization)
  Sender: FDA-Public Use
  Company Number: None

PATIENT
  Age: 81 Year
  Sex: Female
  Weight: 63.3 kg

DRUGS (1)
  1. ABEMACICLIB [Suspect]
     Active Substance: ABEMACICLIB
     Indication: BREAST CANCER STAGE IV
     Route: 048
     Dates: start: 20200609, end: 20200615

REACTIONS (15)
  - Abdominal pain [None]
  - Dehydration [None]
  - Hypertension [None]
  - Acute kidney injury [None]
  - Hypoalbuminaemia [None]
  - White blood cell count decreased [None]
  - Fatigue [None]
  - Diarrhoea [None]
  - Vomiting [None]
  - Urinary tract infection [None]
  - Blood creatinine increased [None]
  - Anaemia [None]
  - Dizziness [None]
  - Nausea [None]
  - Hypocalcaemia [None]

NARRATIVE: CASE EVENT DATE: 20200615
